FAERS Safety Report 4531738-3 (Version None)
Quarter: 2004Q4

REPORT INFORMATION
  Report Type: 
  Country: None (occurrence: None)
  Receive Date: 20041220
  Receipt Date: 20030521
  Transmission Date: 20050328
  Serious: Yes (Congenital Anomaly)
  Sender: FDA-Public Use
  Company Number: US-ROCHE-338538

PATIENT
  Sex: Male

DRUGS (1)
  1. ACCUTANE [Suspect]
     Indication: DRUG USE FOR UNKNOWN INDICATION
     Dates: start: 19951123

REACTIONS (10)
  - BRAIN DAMAGE [None]
  - CEREBRAL PALSY [None]
  - COGNITIVE DISORDER [None]
  - CONGENITAL ANOMALY [None]
  - CONGENITAL CENTRAL NERVOUS SYSTEM ANOMALY [None]
  - CONVULSION [None]
  - DRUG EXPOSURE DURING PREGNANCY [None]
  - FAECAL INCONTINENCE [None]
  - NERVOUS SYSTEM DISORDER [None]
  - PHYSICAL DISABILITY [None]
